FAERS Safety Report 6868899-7 (Version None)
Quarter: 2010Q3

REPORT INFORMATION
  Report Type: 
  Country: None (occurrence: None)
  Receive Date: 20100722
  Receipt Date: 20080918
  Transmission Date: 20110219
  Serious: No
  Sender: FDA-Public Use
  Company Number: US-PFIZER INC-2008051952

PATIENT
  Sex: Female
  Weight: 61.23 kg

DRUGS (7)
  1. CHANTIX [Suspect]
     Indication: TOBACCO ABUSE
     Route: 048
     Dates: start: 20080603
  2. VITAMIN B-12 [Concomitant]
  3. ZINC [Concomitant]
  4. CALCIUM [Concomitant]
  5. MULTI-VITAMINS [Concomitant]
  6. FISH OIL [Concomitant]
  7. NIACIN [Concomitant]

REACTIONS (6)
  - ABNORMAL DREAMS [None]
  - IRRITABILITY [None]
  - NAUSEA [None]
  - NERVOUSNESS [None]
  - NIGHTMARE [None]
  - SLEEP DISORDER [None]
